FAERS Safety Report 5747466-2 (Version None)
Quarter: 2008Q2

REPORT INFORMATION
  Report Type: 
  Country: None (occurrence: None)
  Receive Date: 20080523
  Receipt Date: 20080515
  Transmission Date: 20081010
  Serious: Yes (Other)
  Sender: FDA-Public Use
  Company Number: JP-ELI_LILLY_AND_COMPANY-JP200805003539

PATIENT
  Age: 75 Year
  Sex: Male

DRUGS (3)
  1. CIALIS [Suspect]
     Indication: ERECTILE DYSFUNCTION
     Dosage: 10 MG, UNK
     Route: 048
  2. AMARYL [Concomitant]
     Indication: DIABETES MELLITUS
     Dosage: 3 MG, DAILY (1/D)
     Route: 048
  3. METFORMIN /00082702/ [Concomitant]
     Indication: DIABETES MELLITUS
     Dosage: 250 MG, DAILY (1/D)
     Route: 048

REACTIONS (1)
  - BLINDNESS TRANSIENT [None]
